FAERS Safety Report 18459939 (Version 3)
Quarter: 2021Q3

REPORT INFORMATION
  Report Type: Spontaneous
  Country: JP (occurrence: JP)
  Receive Date: 20201104
  Receipt Date: 20210831
  Transmission Date: 20211014
  Serious: Yes (Life-Threatening, Hospitalization, Other)
  Sender: FDA-Public Use
  Company Number: JP-BRISTOL-MYERS SQUIBB COMPANY-BMS-2019-053940

PATIENT
  Age: 45 Year
  Sex: Male
  Weight: 65 kg

DRUGS (28)
  1. PREDONINE [Suspect]
     Active Substance: PREDNISOLONE
     Dosage: 90 MILLIGRAM
     Route: 065
     Dates: start: 20200402, end: 20200416
  2. PREDONINE [Suspect]
     Active Substance: PREDNISOLONE
     Dosage: 30 MILLIGRAM
     Route: 065
     Dates: start: 20200529, end: 20200604
  3. ALPRAZOLAM. [Concomitant]
     Active Substance: ALPRAZOLAM
     Indication: PRODUCT USED FOR UNKNOWN INDICATION
     Route: 065
  4. LORAZEPAM. [Concomitant]
     Active Substance: LORAZEPAM
     Indication: PRODUCT USED FOR UNKNOWN INDICATION
     Route: 065
  5. PREDONINE [Suspect]
     Active Substance: PREDNISOLONE
     Dosage: 15 MILLIGRAM
     Route: 065
     Dates: start: 20200717, end: 20200806
  6. PREDONINE [Suspect]
     Active Substance: PREDNISOLONE
     Dosage: 10 MILLIGRAM
     Route: 065
     Dates: start: 20200807, end: 20200825
  7. HIRNAMIN [LEVOMEPROMAZINE] [Concomitant]
     Active Substance: LEVOMEPROMAZINE
     Indication: PRODUCT USED FOR UNKNOWN INDICATION
     Route: 065
  8. SAIKOKARYUKOTSUBOREITO [Concomitant]
     Active Substance: HERBALS
  9. PREDONINE [Suspect]
     Active Substance: PREDNISOLONE
     Dosage: 40 MILLIGRAM
     Route: 065
     Dates: start: 20200522, end: 20200528
  10. ZOLPIDEM TARTRATE. [Concomitant]
     Active Substance: ZOLPIDEM TARTRATE
     Indication: PRODUCT USED FOR UNKNOWN INDICATION
     Route: 065
  11. CELLCEPT [Suspect]
     Active Substance: MYCOPHENOLATE MOFETIL\MYCOPHENOLATE MOFETIL HYDROCHLORIDE
     Dosage: 1 GRAM
     Dates: start: 20200930, end: 20201013
  12. PREDONINE [Suspect]
     Active Substance: PREDNISOLONE
     Dosage: 70 MILLIGRAM
     Route: 065
     Dates: start: 20200417, end: 20200507
  13. PREDONINE [Suspect]
     Active Substance: PREDNISOLONE
     Dosage: 5MILLIGRAM
     Route: 065
     Dates: start: 20200910, end: 20200929
  14. PREDONINE [Suspect]
     Active Substance: PREDNISOLONE
     Dosage: 2.5 MILLIGRAM
     Route: 065
     Dates: start: 20201014, end: 20201124
  15. OPDIVO [Suspect]
     Active Substance: NIVOLUMAB
     Dosage: 240 MILLIGRAM
     Route: 041
     Dates: start: 20190702, end: 202002
  16. PREDONINE [Suspect]
     Active Substance: PREDNISOLONE
     Dosage: 3 MILLIGRAM
     Route: 065
     Dates: start: 20200930, end: 20201013
  17. OPDIVO [Suspect]
     Active Substance: NIVOLUMAB
     Indication: MALIGNANT MELANOMA
     Dosage: 240 MILLIGRAM
     Route: 041
     Dates: start: 20190305, end: 20190520
  18. PREDONINE [Suspect]
     Active Substance: PREDNISOLONE
     Dosage: 100 MILLIGRAM
     Route: 065
     Dates: start: 20200304, end: 20200401
  19. PREDONINE [Suspect]
     Active Substance: PREDNISOLONE
     Dosage: 65 MILLIGRAM
     Route: 065
     Dates: start: 20200508, end: 20200514
  20. PREDONINE [Suspect]
     Active Substance: PREDNISOLONE
     Dosage: 50 MILLIGRAM
     Route: 065
     Dates: start: 20200515, end: 20200521
  21. CELLCEPT [Suspect]
     Active Substance: MYCOPHENOLATE MOFETIL\MYCOPHENOLATE MOFETIL HYDROCHLORIDE
     Dosage: 500 MILLIGRAM
     Route: 065
     Dates: start: 20201014, end: 20201028
  22. PREDONINE [Suspect]
     Active Substance: PREDNISOLONE
     Dosage: 25 MILLIGRAM
     Route: 065
     Dates: start: 20200605, end: 20200625
  23. PREDONINE [Suspect]
     Active Substance: PREDNISOLONE
     Dosage: 20 MILLIGRAM
     Route: 065
     Dates: start: 20200626, end: 20200716
  24. CELLCEPT [Suspect]
     Active Substance: MYCOPHENOLATE MOFETIL\MYCOPHENOLATE MOFETIL HYDROCHLORIDE
     Indication: LIVER DISORDER
     Dosage: 2 GRAM
     Route: 065
     Dates: start: 20200312, end: 20200929
  25. PREDONINE [Suspect]
     Active Substance: PREDNISOLONE
     Indication: LIVER DISORDER
     Dosage: 120 MILLIGRAM
     Route: 065
     Dates: start: 20200227, end: 20200303
  26. PREDONINE [Suspect]
     Active Substance: PREDNISOLONE
     Dosage: 7 MILLIGRAM
     Route: 065
     Dates: start: 20200826, end: 20200909
  27. PREDONINE [Suspect]
     Active Substance: PREDNISOLONE
     Dosage: 2 MILLIGRAM
     Route: 065
     Dates: start: 20201125, end: 20210407
  28. BIOFERMIN [LACTOMIN] [Concomitant]
     Active Substance: DIETARY SUPPLEMENT\PROBIOTICS
     Indication: PRODUCT USED FOR UNKNOWN INDICATION
     Route: 065

REACTIONS (5)
  - Hypothyroidism [Unknown]
  - Liver disorder [Recovering/Resolving]
  - Cytomegalovirus viraemia [Recovered/Resolved]
  - Hepatic function abnormal [Not Recovered/Not Resolved]
  - Hyperthyroidism [Recovered/Resolved with Sequelae]

NARRATIVE: CASE EVENT DATE: 20190520
